FAERS Safety Report 4519385-0 (Version None)
Quarter: 2004Q4

REPORT INFORMATION
  Report Type: 
  Country: None (occurrence: None)
  Receive Date: 20041206
  Receipt Date: 20041201
  Transmission Date: 20050328
  Serious: Yes (Hospitalization)
  Sender: FDA-Public Use
  Company Number: 04-12-1657

PATIENT
  Sex: Female

DRUGS (2)
  1. NICARDIPINE  INJECTABLE SOLUTION [Suspect]
     Indication: TOCOLYSIS
     Dosage: 3-4MG/H INTRAVENOUS
     Route: 042
  2. BETAMETHASONE [Concomitant]

REACTIONS (5)
  - ACUTE PULMONARY OEDEMA [None]
  - DRUG EXPOSURE DURING PREGNANCY [None]
  - EJECTION FRACTION DECREASED [None]
  - PULMONARY ARTERIAL PRESSURE INCREASED [None]
  - TACHYCARDIA [None]
